FAERS Safety Report 7486268-6 (Version None)
Quarter: 2011Q2

REPORT INFORMATION
  Report Type: 
  Country: None (occurrence: None)
  Receive Date: 20110517
  Receipt Date: 20110329
  Transmission Date: 20111010
  Serious: No
  Sender: FDA-Public Use
  Company Number: A0920456A

PATIENT
  Age: 75 Year
  Sex: Male

DRUGS (14)
  1. VOTRIENT [Suspect]
     Indication: RENAL CANCER
     Dosage: 800MG PER DAY
     Route: 048
     Dates: start: 20110317
  2. HYDROCHLOROTHIAZIDE [Concomitant]
  3. VITAMIN E [Concomitant]
  4. LOVASTATIN [Concomitant]
  5. CARVEDILOL [Concomitant]
  6. NOVOLOG [Concomitant]
  7. LANTUS [Concomitant]
  8. PLAVIX [Concomitant]
  9. LOTREL [Concomitant]
  10. FOLIC ACID [Concomitant]
  11. TEKTURNA [Concomitant]
  12. TIMOLOL MALEATE [Concomitant]
  13. NIASPAN [Concomitant]
  14. ASPIRIN [Concomitant]

REACTIONS (4)
  - DYSPEPSIA [None]
  - FATIGUE [None]
  - EATING DISORDER [None]
  - BLOOD PRESSURE INCREASED [None]
